FAERS Safety Report 4817594-4 (Version None)
Quarter: 2005Q4

REPORT INFORMATION
  Report Type: 
  Country: None (occurrence: None)
  Receive Date: 20051031
  Receipt Date: 20051021
  Transmission Date: 20060501
  Serious: Yes (Life-Threatening, Hospitalization)
  Sender: FDA-Public Use
  Company Number: USA-2005-0021642

PATIENT
  Age: 28 Year
  Sex: Female

DRUGS (5)
  1. CEFDITOREN PIVOXIL [Suspect]
     Indication: MUMPS
     Dosage: 300 MG, DIALY, ORAL
     Route: 048
     Dates: start: 20051006, end: 20051008
  2. CEFDITOREN PIVOXIL [Suspect]
     Indication: PAROTITIS
     Dosage: 300 MG, DIALY, ORAL
     Route: 048
     Dates: start: 20051006, end: 20051008
  3. CEFDITOREN PIVOXIL [Suspect]
     Indication: PROPHYLAXIS
     Dosage: 300 MG, DIALY, ORAL
     Route: 048
     Dates: start: 20051006, end: 20051008
  4. CEFDITOREN PIVOXIL [Suspect]
     Indication: PURULENCE
     Dosage: 300 MG, DIALY, ORAL
     Route: 048
     Dates: start: 20051006, end: 20051008
  5. LOXONIN              (LOXOPROFEN SODIUM) [Suspect]
     Dosage: 180 MG, DAILY, ORAL
     Route: 048
     Dates: start: 20051006, end: 20051008

REACTIONS (2)
  - LARYNGEAL OEDEMA [None]
  - SUBMAXILLARY GLAND ENLARGEMENT [None]
